FAERS Safety Report 20539983 (Version 1)
Quarter: 2022Q1

REPORT INFORMATION
  Report Type: Spontaneous
  Country: CN (occurrence: CN)
  Receive Date: 20220302
  Receipt Date: 20220302
  Transmission Date: 20220423
  Serious: Yes (Death, Hospitalization)
  Sender: FDA-Public Use
  Company Number: CN-BAYER-2021A243449

PATIENT
  Sex: Male
  Weight: 85 kg

DRUGS (1)
  1. XARELTO [Suspect]
     Active Substance: RIVAROXABAN
     Indication: Cerebral infarction
     Dosage: 1 DF, QD
     Route: 048
     Dates: start: 20210122, end: 20210123

REACTIONS (4)
  - Death [Fatal]
  - Gastric haemorrhage [Unknown]
  - Disease complication [Unknown]
  - Off label use [Unknown]

NARRATIVE: CASE EVENT DATE: 20210101
